FAERS Safety Report 23908024 (Version 2)
Quarter: 2024Q2

REPORT INFORMATION
  Report Type: Spontaneous
  Country: CN (occurrence: CN)
  Receive Date: 20240528
  Receipt Date: 20240604
  Transmission Date: 20240715
  Serious: Yes (Other)
  Sender: FDA-Public Use
  Company Number: CN-PFIZER INC-PV202400067929

PATIENT
  Age: 3 Year
  Sex: Female
  Weight: 17.5 kg

DRUGS (1)
  1. AZITHROMYCIN [Suspect]
     Active Substance: AZITHROMYCIN
     Indication: Anti-infective therapy
     Dosage: 175 MG, 1X/DAY
     Route: 048
     Dates: start: 20240512, end: 20240514

REACTIONS (6)
  - Hypoglycaemia [Recovered/Resolved]
  - Depressed mood [Unknown]
  - Hyperhidrosis [Unknown]
  - Tachypnoea [Unknown]
  - Vomiting [Recovered/Resolved]
  - Diarrhoea [Not Recovered/Not Resolved]

NARRATIVE: CASE EVENT DATE: 20240512
